FAERS Safety Report 8226414-X (Version None)
Quarter: 2012Q1

REPORT INFORMATION
  Report Type: 
  Country: None (occurrence: None)
  Receive Date: 20120321
  Receipt Date: 20120314
  Transmission Date: 20120608
  Serious: Yes (Hospitalization)
  Sender: FDA-Public Use
  Company Number: JP-AMGEN-JPNCT2012008659

PATIENT
  Age: 80 Year
  Sex: Male
  Weight: 67 kg

DRUGS (29)
  1. ROMIPLOSTIM - KHK [Suspect]
     Dosage: 1 MUG/KG, QD
     Route: 058
     Dates: start: 20110708, end: 20110708
  2. ROMIPLOSTIM - KHK [Suspect]
     Dosage: 3 MUG/KG, QD
     Route: 058
     Dates: start: 20110729, end: 20110729
  3. ROMIPLOSTIM - KHK [Suspect]
     Dosage: 5 MUG/KG, QD
     Route: 058
     Dates: start: 20110902, end: 20110902
  4. ROMIPLOSTIM - KHK [Suspect]
     Dosage: 6 MUG/KG, QD
     Route: 058
     Dates: start: 20110909, end: 20110909
  5. ROMIPLOSTIM - KHK [Suspect]
     Dosage: 6 MUG/KG, QD
     Route: 058
     Dates: start: 20110916, end: 20110916
  6. ADONA [Concomitant]
     Indication: IDIOPATHIC THROMBOCYTOPENIC PURPURA
     Route: 048
     Dates: start: 20110812
  7. ROMIPLOSTIM - KHK [Suspect]
     Dosage: 8 MUG/KG, QD
     Route: 058
     Dates: start: 20111014, end: 20111014
  8. ROMIPLOSTIM - KHK [Suspect]
     Dosage: 9 MUG/KG, QD
     Route: 058
     Dates: start: 20111228
  9. ROMIPLOSTIM - KHK [Suspect]
     Dosage: 5 MUG/KG, QD
     Route: 058
     Dates: start: 20110826, end: 20110826
  10. ROMIPLOSTIM - KHK [Suspect]
     Dosage: 7 MUG/KG, QD
     Route: 058
     Dates: start: 20110930, end: 20110930
  11. ROMIPLOSTIM - KHK [Suspect]
     Dosage: 8 MUG/KG, QD
     Route: 058
     Dates: start: 20111021, end: 20111021
  12. ROMIPLOSTIM - KHK [Suspect]
     Dosage: 9 MUG/KG, QD
     Route: 058
     Dates: start: 20111125, end: 20111125
  13. ROMIPLOSTIM - KHK [Suspect]
     Dosage: 4 MUG/KG, QD
     Route: 058
     Dates: start: 20110812, end: 20110812
  14. ROMIPLOSTIM - KHK [Suspect]
     Dosage: 5 MUG/KG, QD
     Route: 058
     Dates: start: 20110819, end: 20110819
  15. ROMIPLOSTIM - KHK [Suspect]
     Dosage: 9 MUG/KG, QD
     Route: 058
     Dates: start: 20111104, end: 20111104
  16. ROMIPLOSTIM - KHK [Suspect]
     Dosage: 9 MUG/KG, QD
     Route: 058
     Dates: start: 20111221, end: 20111221
  17. PLATELETS [Concomitant]
     Dosage: UNK UNK, QD
     Dates: start: 20110715
  18. ROMIPLOSTIM - KHK [Suspect]
     Dosage: 4 MUG/KG, QD
     Route: 058
     Dates: start: 20110805, end: 20110805
  19. ROMIPLOSTIM - KHK [Suspect]
     Dosage: 9 MUG/KG, QD
     Route: 058
     Dates: start: 20111202, end: 20111202
  20. TRANSAMINE CAP [Concomitant]
     Indication: IDIOPATHIC THROMBOCYTOPENIC PURPURA
     Route: 048
     Dates: start: 20110812
  21. NERIPROCT [Concomitant]
     Indication: ANAL HAEMORRHAGE
     Dosage: UNCERTAINTY
     Route: 061
  22. ROMIPLOSTIM - KHK [Suspect]
     Indication: IDIOPATHIC THROMBOCYTOPENIC PURPURA
     Dosage: 1 MUG/KG, QD
     Route: 058
     Dates: start: 20110701, end: 20110701
  23. ROMIPLOSTIM - KHK [Suspect]
     Dosage: 2 MUG/KG, QD
     Route: 058
     Dates: start: 20110722, end: 20110722
  24. ROMIPLOSTIM - KHK [Suspect]
     Dosage: 7 MUG/KG, QD
     Route: 058
     Dates: start: 20111007, end: 20111007
  25. ROMIPLOSTIM - KHK [Suspect]
     Dosage: 9 MUG/KG, QD
     Route: 058
     Dates: start: 20111209, end: 20111209
  26. ROMIPLOSTIM - KHK [Suspect]
     Dosage: 9 MUG/KG, QD
     Route: 058
     Dates: start: 20111216, end: 20111216
  27. ROMIPLOSTIM - KHK [Suspect]
     Dosage: 2 MUG/KG, QD
     Route: 058
     Dates: start: 20110715, end: 20110715
  28. ROMIPLOSTIM - KHK [Suspect]
     Dosage: 6 MUG/KG, QD
     Route: 058
     Dates: start: 20110922, end: 20110922
  29. ROMIPLOSTIM - KHK [Suspect]
     Dosage: 8 MUG/KG, QD
     Route: 058
     Dates: start: 20111028, end: 20111028

REACTIONS (2)
  - HAEMORRHOIDS [None]
  - HEPATIC NEOPLASM MALIGNANT [None]
